FAERS Safety Report 8338865-3 (Version None)
Quarter: 2012Q2

REPORT INFORMATION
  Report Type: 
  Country: None (occurrence: None)
  Receive Date: 20120504
  Receipt Date: 20120430
  Transmission Date: 20120825
  Serious: Yes (Life-Threatening, Hospitalization, Other)
  Sender: FDA-Public Use
  Company Number: CHNY2012BR000520

PATIENT
  Sex: Female
  Weight: 57 kg

DRUGS (3)
  1. ACETAMINOPHEN, ASPIRIN AND CAFFEINE [Suspect]
     Indication: HEADACHE
     Dosage: 1 DF, QD PRN
     Route: 048
     Dates: start: 20020101
  2. OTHER THERAPEUTIC PRODUCTS [Concomitant]
  3. TAPAZOL [Concomitant]
     Indication: HYPERTHYROIDISM
     Dosage: 5 MG, BID
     Route: 048

REACTIONS (18)
  - INFARCTION [None]
  - GASTRITIS [None]
  - ARTERIAL RUPTURE [None]
  - GASTRIC ULCER [None]
  - HEADACHE [None]
  - MITRAL VALVE DISEASE [None]
  - GASTRITIS EROSIVE [None]
  - FEELING ABNORMAL [None]
  - DYSPNOEA [None]
  - PULMONARY OEDEMA [None]
  - EMPHYSEMA [None]
  - LUNG DISORDER [None]
  - PAIN IN EXTREMITY [None]
  - BACK PAIN [None]
  - CARDIOMEGALY [None]
  - FATIGUE [None]
  - THERAPEUTIC RESPONSE DECREASED [None]
  - HAEMORRHAGE [None]
